FAERS Safety Report 6027231-1 (Version None)
Quarter: 2009Q1

REPORT INFORMATION
  Report Type: 
  Country: None (occurrence: None)
  Receive Date: 20090105
  Receipt Date: 20081223
  Transmission Date: 20090719
  Serious: Yes (Other)
  Sender: FDA-Public Use
  Company Number: US-ELI_LILLY_AND_COMPANY-US200812002753

PATIENT
  Age: 64 Year
  Sex: Male
  Weight: 82.993 kg

DRUGS (8)
  1. BYETTA [Suspect]
     Indication: TYPE 2 DIABETES MELLITUS
     Dosage: 5 UG, 2/D
     Route: 058
     Dates: start: 20080304, end: 20080404
  2. BYETTA [Suspect]
     Dosage: 10 UG, 2/D
     Route: 058
     Dates: start: 20080404, end: 20081119
  3. METFORMIN [Concomitant]
     Indication: TYPE 2 DIABETES MELLITUS
     Dosage: 1000 MG, 2/D
     Route: 048
  4. LIPITOR [Concomitant]
     Indication: HYPERLIPIDAEMIA
     Dosage: 10 MG, EACH EVENING
     Route: 048
  5. TOPAMAX [Concomitant]
     Indication: MIGRAINE
     Dosage: 12.5 MG, DAILY (1/D)
     Route: 048
  6. ASPIRIN [Concomitant]
     Dosage: 81 MG, DAILY (1/D)
  7. DIOVAN [Concomitant]
     Indication: HYPERTENSION
     Dosage: UNK, DAILY (1/D)
  8. PRILOSEC [Concomitant]
     Dosage: UNK, UNKNOWN

REACTIONS (2)
  - PANCREATITIS [None]
  - WEIGHT INCREASED [None]
